FAERS Safety Report 5038411-6 (Version None)
Quarter: 2006Q2

REPORT INFORMATION
  Report Type: 
  Country: None (occurrence: None)
  Receive Date: 20060629
  Receipt Date: 20060619
  Transmission Date: 20061013
  Serious: Yes (Death, Hospitalization)
  Sender: FDA-Public Use
  Company Number: PHFR2006MT02034

PATIENT
  Age: 35 Year
  Sex: Female
  Weight: 62 kg

DRUGS (4)
  1. CLOZAPINE [Suspect]
     Indication: SCHIZOPHRENIA
     Dosage: 600MG
     Route: 048
     Dates: start: 19970601, end: 20060612
  2. ANAFRANIL [Concomitant]
     Route: 048
  3. HALOPERIDOL [Concomitant]
     Route: 048
  4. HALOPERIDOL [Concomitant]
     Dosage: UNK, UNK
     Route: 030

REACTIONS (2)
  - CEREBRAL ISCHAEMIA [None]
  - CHOKING [None]
